FAERS Safety Report 16193557 (Version 6)
Quarter: 2021Q2

REPORT INFORMATION
  Report Type: Report from Study
  Country: US (occurrence: US)
  Receive Date: 20190413
  Receipt Date: 20210509
  Transmission Date: 20210716
  Serious: No
  Sender: FDA-Public Use
  Company Number: PHEH2019US015879

PATIENT
  Sex: Male

DRUGS (2)
  1. COSENTYX [Suspect]
     Active Substance: SECUKINUMAB
     Dosage: 300 MG, QMO
     Route: 058
  2. COSENTYX [Suspect]
     Active Substance: SECUKINUMAB
     Indication: PSORIASIS
     Dosage: 300 MG,  (300 MG FOR 5 WEEKS AND DEN 300 MG QMO)
     Route: 058
     Dates: start: 20190301

REACTIONS (7)
  - Nasopharyngitis [Not Recovered/Not Resolved]
  - Skin plaque [Recovering/Resolving]
  - Product dose omission issue [Unknown]
  - Therapeutic product effect decreased [Unknown]
  - Decreased immune responsiveness [Unknown]
  - Skin lesion [Recovering/Resolving]
  - Erythema [Unknown]
